FAERS Safety Report 20584805 (Version 1)
Quarter: 2022Q1

REPORT INFORMATION
  Report Type: Spontaneous
  Country: US (occurrence: US)
  Receive Date: 20220311
  Receipt Date: 20220311
  Transmission Date: 20220423
  Serious: Yes (Death)
  Sender: FDA-Public Use
  Company Number: US-NOVARTISPH-NVSC2022US056737

PATIENT
  Age: 18 Year

DRUGS (5)
  1. DECITABINE [Suspect]
     Active Substance: DECITABINE
     Indication: Acute myeloid leukaemia refractory
     Dosage: 15 MG/M2 (DAYS 1-5)
     Route: 065
  2. FLUDARABINE PHOSPHATE [Suspect]
     Active Substance: FLUDARABINE PHOSPHATE
     Indication: Acute myeloid leukaemia refractory
     Dosage: 30 MG/M2 (DAYS 6-10)
     Route: 065
  3. FILGRASTIM [Suspect]
     Active Substance: FILGRASTIM
     Indication: Neutropenia
     Dosage: 5 U/KG/DOSE DAY 5
     Route: 065
  4. VORINOSTAT [Suspect]
     Active Substance: VORINOSTAT
     Indication: Acute myeloid leukaemia refractory
     Dosage: 200 MG, BID (DAYS 1-5)
     Route: 065
  5. CYTARABINE [Suspect]
     Active Substance: CYTARABINE
     Indication: Acute myeloid leukaemia refractory
     Dosage: 2000 MG/M2 DAYS 6-10(72 H PRIOR)
     Route: 037

REACTIONS (3)
  - Bronchopulmonary aspergillosis [Fatal]
  - Disseminated aspergillosis [Fatal]
  - Product use in unapproved indication [Unknown]
